FAERS Safety Report 7755033-4 (Version None)
Quarter: 2011Q3

REPORT INFORMATION
  Report Type: 
  Country: None (occurrence: None)
  Receive Date: 20110913
  Receipt Date: 20110831
  Transmission Date: 20111222
  Serious: Yes (Death, Other)
  Sender: FDA-Public Use
  Company Number: UTC-009869

PATIENT
  Age: 62 Year
  Sex: Female
  Weight: 96.36 kg

DRUGS (3)
  1. COUMADIN [Concomitant]
  2. REMODULIN [Suspect]
     Indication: PULMONARY ARTERIAL HYPERTENSION
     Dosage: 97.92 UG/KG (0.068 UG/KG, 1 IN 1 MIN) , INTRAVENOUS
     Route: 042
     Dates: start: 20090716
  3. DIURETICS (DIURETICS) [Concomitant]

REACTIONS (1)
  - CARDIO-RESPIRATORY ARREST [None]
